FAERS Safety Report 4855944-3 (Version None)
Quarter: 2005Q4

REPORT INFORMATION
  Report Type: 
  Country: None (occurrence: None)
  Receive Date: 20051216
  Receipt Date: 20051205
  Transmission Date: 20060501
  Serious: Yes (Death)
  Sender: FDA-Public Use
  Company Number: US-JNJFOC-20050805038

PATIENT
  Sex: Male
  Weight: 102.06 kg

DRUGS (22)
  1. DURAGESIC-100 [Suspect]
     Route: 062
  2. DURAGESIC-100 [Suspect]
     Route: 062
  3. DURAGESIC-100 [Suspect]
     Indication: DRUG USE FOR UNKNOWN INDICATION
     Route: 062
  4. OXYCODONE [Suspect]
     Dosage: 5/325 EVERY FOUR HOURS AS NEEDED
  5. SYNTHROID [Concomitant]
  6. SINGULAIR [Concomitant]
  7. GABAPENTIN [Concomitant]
  8. MIRAPEX [Concomitant]
  9. SOMA [Concomitant]
  10. SONATA [Concomitant]
  11. HYDROCODONE [Concomitant]
  12. VALIUM [Concomitant]
     Dosage: 5 MG EVERY 6 HOURS AS NEEDED
  13. FLONASE [Concomitant]
     Dosage: 2 SPRAYS EACH NOSTRIL DAILY
  14. MULTI-VITAMIN [Concomitant]
  15. MULTI-VITAMIN [Concomitant]
  16. MULTI-VITAMIN [Concomitant]
  17. MULTI-VITAMIN [Concomitant]
  18. MULTI-VITAMIN [Concomitant]
  19. MULTI-VITAMIN [Concomitant]
  20. MULTI-VITAMIN [Concomitant]
  21. MULTI-VITAMIN [Concomitant]
     Dosage: DAILY
  22. ZOFRAN [Concomitant]
     Dosage: AS NEEDED

REACTIONS (5)
  - BRAIN OEDEMA [None]
  - COMA [None]
  - DRUG TOXICITY [None]
  - LOBAR PNEUMONIA [None]
  - MYOCARDIAL INFARCTION [None]
